FAERS Safety Report 6105484-9 (Version None)
Quarter: 2009Q1

REPORT INFORMATION
  Report Type: 
  Country: None (occurrence: None)
  Receive Date: 20090306
  Receipt Date: 20090227
  Transmission Date: 20090719
  Serious: Yes (Hospitalization)
  Sender: FDA-Public Use
  Company Number: A0771635A

PATIENT
  Age: 46 Year
  Sex: Female
  Weight: 77.3 kg

DRUGS (15)
  1. AVANDIA [Suspect]
     Indication: DIABETES MELLITUS
     Dosage: 8MG PER DAY
     Route: 048
     Dates: start: 20010505, end: 20070901
  2. HYDROCHLOROTHIAZIDE [Concomitant]
  3. LIPITOR [Concomitant]
  4. ABILIFY [Concomitant]
  5. RISPERDAL [Concomitant]
  6. LEXAPRO [Concomitant]
  7. DOXEPIN HCL [Concomitant]
  8. COMBIVENT [Concomitant]
  9. ALBUTEROL [Concomitant]
  10. FLONASE [Concomitant]
  11. LORAZEPAM [Concomitant]
  12. BUSPIRONE HCL [Concomitant]
  13. ZESTRIL [Concomitant]
  14. ZOLOFT [Concomitant]
  15. EFFEXOR [Concomitant]

REACTIONS (3)
  - CARDIAC DISORDER [None]
  - CORONARY ARTERY DISEASE [None]
  - MYOCARDIAL INFARCTION [None]
